FAERS Safety Report 15531381 (Version 5)
Quarter: 2019Q4

REPORT INFORMATION
  Report Type: Report from Study
  Country: None (occurrence: US)
  Receive Date: 20181019
  Receipt Date: 20191007
  Transmission Date: 20200122
  Serious: Yes (Hospitalization, Other)
  Sender: FDA-Public Use
  Company Number: US-ABBVIE-18K-163-2518874-00

PATIENT
  Age: 84 Year
  Sex: Female
  Weight: 53.12 kg

DRUGS (18)
  1. BONIVA [Suspect]
     Active Substance: IBANDRONATE SODIUM
     Indication: OSTEOPOROSIS
     Route: 065
  2. TYLENOL [Concomitant]
     Active Substance: ACETAMINOPHEN
     Indication: PRODUCT USED FOR UNKNOWN INDICATION
  3. WARFARIN [Concomitant]
     Active Substance: WARFARIN
     Indication: FACTOR V LEIDEN MUTATION
  4. CARAFATE [Concomitant]
     Active Substance: SUCRALFATE
     Indication: PRODUCT USED FOR UNKNOWN INDICATION
  5. THYROXINE [Concomitant]
     Active Substance: LEVOTHYROXINE
     Indication: HYPOTHYROIDISM
  6. WARFARIN [Concomitant]
     Active Substance: WARFARIN
     Indication: COAGULATION FACTOR V LEVEL
  7. VITAMIN B12 [Concomitant]
     Active Substance: CYANOCOBALAMIN
     Indication: VITAMIN SUPPLEMENTATION
  8. HUMIRA [Suspect]
     Active Substance: ADALIMUMAB
     Indication: CROHN^S DISEASE
     Dosage: HUMIRA CITRATE FREE
     Route: 058
     Dates: start: 20180514, end: 20180917
  9. CALCIUM [Concomitant]
     Active Substance: CALCIUM
     Indication: OSTEOPOROSIS
  10. HUMIRA [Suspect]
     Active Substance: ADALIMUMAB
     Dosage: HUMIRA CITRATE FREE
     Route: 058
     Dates: start: 20181119
  11. ASPIRIN. [Concomitant]
     Active Substance: ASPIRIN
     Indication: PRODUCT USED FOR UNKNOWN INDICATION
  12. ZYRTEC [Concomitant]
     Active Substance: CETIRIZINE HYDROCHLORIDE
     Indication: PRODUCT USED FOR UNKNOWN INDICATION
  13. SYNTHROID [Concomitant]
     Active Substance: LEVOTHYROXINE SODIUM
     Indication: PRODUCT USED FOR UNKNOWN INDICATION
  14. FLUCONAZOLE. [Concomitant]
     Active Substance: FLUCONAZOLE
     Indication: ORAL FUNGAL INFECTION
  15. VITAMIN D3 [Concomitant]
     Active Substance: CHOLECALCIFEROL
     Indication: SUPPLEMENTATION THERAPY
  16. CYANOCOBALAMINE [Concomitant]
     Active Substance: CYANOCOBALAMIN
     Indication: PRODUCT USED FOR UNKNOWN INDICATION
  17. NEXIUM [Concomitant]
     Active Substance: ESOMEPRAZOLE MAGNESIUM
     Indication: PRODUCT USED FOR UNKNOWN INDICATION
  18. POTASSIUM CHLORIDE. [Concomitant]
     Active Substance: POTASSIUM CHLORIDE
     Indication: MUSCLE SPASMS

REACTIONS (35)
  - Cholecystitis [Recovered/Resolved]
  - Fatigue [Recovered/Resolved]
  - Adhesion [Recovered/Resolved]
  - Nephrolithiasis [Recovering/Resolving]
  - Muscular weakness [Recovered/Resolved]
  - Diarrhoea [Not Recovered/Not Resolved]
  - Memory impairment [Not Recovered/Not Resolved]
  - Feeling cold [Recovered/Resolved]
  - Cholelithiasis [Recovered/Resolved]
  - Decreased appetite [Not Recovered/Not Resolved]
  - Mobility decreased [Unknown]
  - Gallbladder oedema [Recovered/Resolved]
  - Early satiety [Recovering/Resolving]
  - Loss of personal independence in daily activities [Not Recovered/Not Resolved]
  - Balance disorder [Recovered/Resolved]
  - Abdominal pain upper [Not Recovered/Not Resolved]
  - Dizziness [Not Recovered/Not Resolved]
  - Weight decreased [Not Recovered/Not Resolved]
  - Nasal crusting [Recovering/Resolving]
  - Fatigue [Not Recovered/Not Resolved]
  - Weight decreased [Recovered/Resolved]
  - Skin laceration [Not Recovered/Not Resolved]
  - Muscular weakness [Not Recovered/Not Resolved]
  - Rash [Recovering/Resolving]
  - Back pain [Not Recovered/Not Resolved]
  - Cholecystitis infective [Recovered/Resolved]
  - Muscle spasms [Not Recovered/Not Resolved]
  - Nephrolithiasis [Recovered/Resolved]
  - Asthenia [Recovering/Resolving]
  - Tremor [Recovered/Resolved]
  - Procedural pain [Not Recovered/Not Resolved]
  - Skin discolouration [Not Recovered/Not Resolved]
  - Dysphonia [Not Recovered/Not Resolved]
  - Insomnia [Not Recovered/Not Resolved]
  - Muscular weakness [Not Recovered/Not Resolved]

NARRATIVE: CASE EVENT DATE: 201807
